FAERS Safety Report 18977323 (Version 7)
Quarter: 2021Q3

REPORT INFORMATION
  Report Type: Report from Study
  Country: US (occurrence: US)
  Receive Date: 20210306
  Receipt Date: 20210925
  Transmission Date: 20211014
  Serious: No
  Sender: FDA-Public Use
  Company Number: NVSC2021US048232

PATIENT
  Age: 57 Year
  Sex: Female

DRUGS (2)
  1. COSENTYX [Suspect]
     Active Substance: SECUKINUMAB
     Dosage: 300 MG, QMO (BENEATH THE SKINUSUALLY VIA INJECTION)
     Route: 058
     Dates: start: 202101
  2. COSENTYX [Suspect]
     Active Substance: SECUKINUMAB
     Indication: PSORIASIS
     Dosage: 300 MG, QMO (BENEATH THE SKINUSUALLY VIA INJECTION)
     Route: 058
     Dates: start: 202001

REACTIONS (3)
  - Rash macular [Unknown]
  - Injection site bruising [Unknown]
  - Biopsy [Unknown]

NARRATIVE: CASE EVENT DATE: 202101
